FAERS Safety Report 16085101 (Version 2)
Quarter: 2020Q2

REPORT INFORMATION
  Report Type: Spontaneous
  Country: US (occurrence: US)
  Receive Date: 20190318
  Receipt Date: 20200501
  Transmission Date: 20200713
  Serious: Yes (Other)
  Sender: FDA-Public Use
  Company Number: US-JNJFOC-20190312088

PATIENT
  Age: 60 Year
  Sex: Male

DRUGS (2)
  1. DARZALEX [Suspect]
     Active Substance: DARATUMUMAB
     Indication: IMMUNE THROMBOCYTOPENIA
     Route: 065
  2. PREDNISONE. [Concomitant]
     Active Substance: PREDNISONE
     Route: 065

REACTIONS (4)
  - Off label use [Unknown]
  - Therapeutic response unexpected [Unknown]
  - Hypogammaglobulinaemia [Unknown]
  - Product use in unapproved indication [Unknown]
